FAERS Safety Report 8337953 (Version 4)
Quarter: 2013Q4

REPORT INFORMATION
  Report Type: Spontaneous
  Country: US (occurrence: US)
  Receive Date: 20120116
  Receipt Date: 20131219
  Transmission Date: 20140711
  Serious: Yes (Hospitalization)
  Sender: FDA-Public Use
  Company Number: US-GLAXOSMITHKLINE-A0913493A

PATIENT
  Age: 58 Year
  Sex: Female
  Weight: 59.5 kg

DRUGS (2)
  1. AVANDAMET [Suspect]
     Indication: DIABETES MELLITUS
     Route: 048
     Dates: start: 200501, end: 200509
  2. AVANDIA [Suspect]
     Indication: DIABETES MELLITUS
     Dosage: 4MG TWICE PER DAY
     Route: 048
     Dates: start: 200505, end: 200605

REACTIONS (3)
  - Brain stem infarction [Unknown]
  - Cerebrovascular accident [Unknown]
  - Cardiovascular disorder [Unknown]
